FAERS Safety Report 6469987-X (Version None)
Quarter: 2009Q4

REPORT INFORMATION
  Report Type: 
  Country: None (occurrence: None)
  Receive Date: 20091203
  Receipt Date: 20071208
  Transmission Date: 20100525
  Serious: Yes (Other)
  Sender: FDA-Public Use
  Company Number: TR-ELI_LILLY_AND_COMPANY-TR200712003616

PATIENT
  Age: 63 Year
  Sex: Female
  Weight: 105 kg

DRUGS (2)
  1. HUMALOG MIX 75/25 [Suspect]
     Dosage: 5 U, EACH MORNING
     Route: 058
     Dates: start: 20070101
  2. HUMALOG MIX 75/25 [Suspect]
     Dosage: 10 U, EACH EVENING
     Route: 058

REACTIONS (3)
  - COMA [None]
  - MUSCULAR WEAKNESS [None]
  - PALPITATIONS [None]
